FAERS Safety Report 7109057-0 (Version None)
Quarter: 2010Q4

REPORT INFORMATION
  Report Type: 
  Country: None (occurrence: None)
  Receive Date: 20101117
  Receipt Date: 20101110
  Transmission Date: 20110411
  Serious: Yes (Other)
  Sender: FDA-Public Use
  Company Number: US-US-EMD SERONO, INC.-230269J09USA

PATIENT
  Sex: Female

DRUGS (2)
  1. REBIF [Suspect]
     Indication: MULTIPLE SCLEROSIS
     Route: 058
     Dates: start: 20081212, end: 20090901
  2. TOO MANY MEDICATIONS TO LIST [Concomitant]

REACTIONS (5)
  - CHOKING SENSATION [None]
  - CONTUSION [None]
  - HEPATIC ENZYME INCREASED [None]
  - LIPOMA [None]
  - WHITE BLOOD CELL COUNT ABNORMAL [None]
